FAERS Safety Report 8384959-6 (Version None)
Quarter: 2012Q2

REPORT INFORMATION
  Report Type: 
  Country: None (occurrence: None)
  Receive Date: 20120524
  Receipt Date: 20120520
  Transmission Date: 20120825
  Serious: Yes (Death)
  Sender: FDA-Public Use
  Company Number: PHHY2012DE044118

PATIENT

DRUGS (8)
  1. CARMUSTINE [Concomitant]
  2. THIOTEPA [Concomitant]
  3. VALGANCICLOVIR [Concomitant]
  4. GANCICLOVIR [Concomitant]
  5. FOSCARNET [Concomitant]
  6. CYCLOSPORINE [Suspect]
     Indication: PROPHYLAXIS AGAINST GRAFT VERSUS HOST DISEASE
     Dosage: 2.5 MG/KG, BID
     Route: 042
  7. FLUDARABINE PHOSPHATE [Concomitant]
  8. ALEMTUZUMAB [Concomitant]
     Indication: PROPHYLAXIS AGAINST GRAFT VERSUS HOST DISEASE

REACTIONS (1)
  - GRAFT VERSUS HOST DISEASE IN INTESTINE [None]
